FAERS Safety Report 11999719 (Version 1)
Quarter: 2016Q1

REPORT INFORMATION
  Report Type: Spontaneous
  Country: US (occurrence: US)
  Receive Date: 20160204
  Receipt Date: 20160204
  Transmission Date: 20160526
  Serious: Yes (Other)
  Sender: FDA-Public Use
  Company Number: US-AMGEN-USASP2016012310

PATIENT
  Age: 58 Year
  Sex: Female

DRUGS (1)
  1. ENBREL [Suspect]
     Active Substance: ETANERCEPT
     Indication: RHEUMATOID ARTHRITIS
     Dosage: 50 MG, QWK
     Route: 058
     Dates: start: 201507

REACTIONS (8)
  - Injection site mass [Recovering/Resolving]
  - Urinary tract infection [Recovering/Resolving]
  - Abdominal distension [Recovering/Resolving]
  - Systemic lupus erythematosus [Recovering/Resolving]
  - Melanocytic naevus [Recovering/Resolving]
  - Injection site bruising [Recovering/Resolving]
  - Bladder prolapse [Recovering/Resolving]
  - Injection site pain [Recovering/Resolving]

NARRATIVE: CASE EVENT DATE: 20160125
